FAERS Safety Report 4758229-9 (Version None)
Quarter: 2005Q3

REPORT INFORMATION
  Report Type: 
  Country: None (occurrence: None)
  Receive Date: 20050831
  Receipt Date: 20050824
  Transmission Date: 20060218
  Serious: Yes (Life-Threatening, Hospitalization, Other)
  Sender: FDA-Public Use
  Company Number: US-MERCK-0508USA04189

PATIENT
  Age: 62 Year
  Sex: Male

DRUGS (5)
  1. AMARYL [Concomitant]
     Route: 065
  2. ACTOS [Concomitant]
     Route: 065
  3. COZAAR [Concomitant]
     Route: 065
  4. TENORMIN [Concomitant]
     Route: 065
  5. VIOXX [Suspect]
     Indication: ARTHRALGIA
     Route: 048

REACTIONS (1)
  - MYOCARDIAL INFARCTION [None]
